FAERS Safety Report 20963279 (Version 1)
Quarter: 2022Q2

REPORT INFORMATION
  Report Type: Spontaneous
  Country: GB (occurrence: GB)
  Receive Date: 20220615
  Receipt Date: 20220615
  Transmission Date: 20220721
  Serious: Yes (Hospitalization)
  Sender: FDA-Public Use
  Company Number: GB-VERTEX PHARMACEUTICALS-2022-008754

PATIENT
  Age: 21 Year
  Sex: Male

DRUGS (2)
  1. ELEXACAFTOR\IVACAFTOR\TEZACAFTOR [Suspect]
     Active Substance: ELEXACAFTOR\IVACAFTOR\TEZACAFTOR
     Indication: Cystic fibrosis
     Dosage: (IVACAFTOR/ TEZACAFTOR/ ELEXACAFTOR) QD
     Route: 048
     Dates: start: 202011
  2. KALYDECO [Suspect]
     Active Substance: IVACAFTOR
     Indication: Cystic fibrosis
     Dosage: QD
     Route: 048
     Dates: start: 202011

REACTIONS (5)
  - Headache [Not Recovered/Not Resolved]
  - Intentional overdose [Unknown]
  - Alcohol use [Unknown]
  - Lactic acidosis [Recovering/Resolving]
  - Nausea [Not Recovered/Not Resolved]

NARRATIVE: CASE EVENT DATE: 20220601
